FAERS Safety Report 18168327 (Version 1)
Quarter: 2020Q3

REPORT INFORMATION
  Report Type: Report from Study
  Country: GB (occurrence: GB)
  Receive Date: 20200819
  Receipt Date: 20200819
  Transmission Date: 20201103
  Serious: Yes (Other)
  Sender: FDA-Public Use
  Company Number: NVSC2020GB174921

PATIENT
  Sex: Male

DRUGS (2)
  1. HYRIMOZ [Suspect]
     Active Substance: ADALIMUMAB-ADAZ
     Indication: ANKYLOSING SPONDYLITIS
     Dosage: 1 DF, Q2W
     Route: 065
     Dates: start: 20200520
  2. HYRIMOZ [Suspect]
     Active Substance: ADALIMUMAB-ADAZ
     Dosage: 40 MG, Q2W
     Route: 058
     Dates: start: 20200520

REACTIONS (9)
  - Spider vein [Unknown]
  - Pain in extremity [Unknown]
  - Dizziness [Unknown]
  - Pigmentation disorder [Unknown]
  - Arthralgia [Unknown]
  - Insomnia [Unknown]
  - Testicular haemorrhage [Unknown]
  - Decreased appetite [Unknown]
  - Fatigue [Unknown]
